FAERS Safety Report 8925679 (Version 1)
Quarter: 2012Q4

REPORT INFORMATION
  Report Type: 
  Country: IE (occurrence: IE)
  Receive Date: 20121126
  Receipt Date: 20121126
  Transmission Date: 20130627
  Serious: Yes (Other)
  Sender: FDA-Public Use
  Company Number: IE-PFIZER INC-2012290870

PATIENT
  Sex: Female

DRUGS (1)
  1. TOVIAZ [Suspect]

REACTIONS (2)
  - Multiple sclerosis [Unknown]
  - Mobility decreased [Unknown]
